FAERS Safety Report 21371421 (Version 4)
Quarter: 2022Q4

REPORT INFORMATION
  Report Type: Report from Study
  Country: PL (occurrence: PL)
  Receive Date: 20220923
  Receipt Date: 20221101
  Transmission Date: 20230113
  Serious: Yes (Death, Other)
  Sender: FDA-Public Use
  Company Number: PL-BRISTOL-MYERS SQUIBB COMPANY-2022-075968

PATIENT
  Age: 66 Year
  Sex: Female
  Weight: 70 kg

DRUGS (34)
  1. LENALIDOMIDE [Suspect]
     Active Substance: LENALIDOMIDE
     Indication: Non-Hodgkin^s lymphoma unspecified histology indolent
     Dosage: ON 07-JUL-2022, SHE RECEIVED MOST RECENT DOSE 20 MG OF STUDY DRUG LENALIDOMIDE PRIOR TO SAE/AE
     Route: 048
     Dates: start: 20220525, end: 20220913
  2. MOSUNETUZUMAB [Suspect]
     Active Substance: MOSUNETUZUMAB
     Indication: Non-Hodgkin^s lymphoma unspecified histology indolent
     Dosage: ON 23-JUN-2022, SHE RECEIVED MOST RECENT DOSE 30 MG OF STUDY DRUG MOSUNETUZUMAB PRIOR TO SAE/AE
     Route: 042
     Dates: start: 20220405, end: 20220913
  3. PIPERACILLIN SODIUM\TAZOBACTAM SODIUM [Concomitant]
     Active Substance: PIPERACILLIN SODIUM\TAZOBACTAM SODIUM
     Indication: Bacteraemia
     Dosage: 1 IN 1 D
     Route: 042
     Dates: start: 20220406
  4. BISEPTOL [Concomitant]
     Active Substance: SULFAMETHOXAZOLE\TRIMETHOPRIM
     Indication: Infection prophylaxis
     Dosage: 3 IN 1 WK
     Route: 048
     Dates: start: 20220404
  5. METOPROLOL TARTRATE [Concomitant]
     Active Substance: METOPROLOL TARTRATE
     Dosage: 2 IN 1 D
     Route: 048
     Dates: start: 20220421, end: 20220707
  6. METOPROLOL TARTRATE [Concomitant]
     Active Substance: METOPROLOL TARTRATE
     Indication: Product used for unknown indication
  7. HUMAN PLASMA [Concomitant]
     Active Substance: HUMAN PLASMA
     Indication: Product used for unknown indication
     Dosage: 1 U
     Route: 065
     Dates: start: 20220410
  8. DEXAMETHASONE [Concomitant]
     Active Substance: DEXAMETHASONE
     Indication: Product used for unknown indication
     Dosage: 1 IN 1 D
     Route: 042
     Dates: start: 20220623, end: 20220623
  9. ACETAMINOPHEN [Concomitant]
     Active Substance: ACETAMINOPHEN
     Indication: Product used for unknown indication
     Dosage: 1 IN 1 D
     Route: 042
     Dates: start: 20220623, end: 20220623
  10. ACETAMINOPHEN [Concomitant]
     Active Substance: ACETAMINOPHEN
     Dosage: 1 IN 1 D
     Route: 042
     Dates: start: 20220708, end: 20220709
  11. ESCITAL [Concomitant]
     Indication: Depression
     Dosage: 1 IN 1 D
     Route: 048
     Dates: start: 20220708, end: 20220718
  12. ESCITAL [Concomitant]
     Dosage: 1 IN 1 D
     Route: 048
     Dates: start: 20220624
  13. ESCITAL [Concomitant]
     Route: 058
     Dates: start: 20220708, end: 20220718
  14. ALLOPURINOL [Concomitant]
     Active Substance: ALLOPURINOL
     Indication: Product used for unknown indication
     Route: 065
     Dates: start: 20220407
  15. PIPERACILLIN SODIUM\TAZOBACTAM SODIUM [Concomitant]
     Active Substance: PIPERACILLIN SODIUM\TAZOBACTAM SODIUM
     Indication: Febrile neutropenia
     Dosage: 4 IN 1 D
     Route: 042
     Dates: start: 20220708, end: 20220719
  16. FILGRASTIM [Concomitant]
     Active Substance: FILGRASTIM
     Indication: Febrile neutropenia
     Dosage: 1 IN 1 D
     Route: 058
     Dates: start: 20220708, end: 20220713
  17. CALCIUM CHLORIDE\MAGNESIUM CHLORIDE\POTASSIUM CHLORIDE\SODIUM ACETATE\ [Concomitant]
     Active Substance: CALCIUM CHLORIDE\MAGNESIUM CHLORIDE\POTASSIUM CHLORIDE\SODIUM ACETATE\SODIUM CHLORIDE\SODIUM CITRATE
     Dosage: 1 IN 1 D
     Route: 042
     Dates: start: 20220708, end: 20220718
  18. DEPRATAL [Concomitant]
     Indication: Depression
     Route: 048
     Dates: start: 20211102, end: 20220624
  19. HASCOVIR [Concomitant]
     Dosage: 2 IN 1 D
     Route: 048
     Dates: start: 20210824
  20. HASCOVIR [Concomitant]
     Indication: Product used for unknown indication
  21. CLEMASTINE [Concomitant]
     Active Substance: CLEMASTINE
     Dosage: 1 IN 1 D
     Route: 042
     Dates: start: 20220623, end: 20220623
  22. CLEMASTINE [Concomitant]
     Active Substance: CLEMASTINE
     Indication: Product used for unknown indication
  23. ENOXAPARIN SODIUM [Concomitant]
     Active Substance: ENOXAPARIN SODIUM
     Indication: Prophylaxis
     Dosage: 1 IN 1 D
     Route: 058
     Dates: start: 20220525
  24. ENOXAPARIN SODIUM [Concomitant]
     Active Substance: ENOXAPARIN SODIUM
     Route: 058
     Dates: start: 20220708, end: 20220718
  25. ALLOPURINOL [Concomitant]
     Active Substance: ALLOPURINOL
     Indication: Product used for unknown indication
     Route: 048
     Dates: start: 20210824
  26. RITUXIMAB [Concomitant]
     Active Substance: RITUXIMAB
     Indication: Product used for unknown indication
     Route: 065
  27. VANCOMYCIN [Concomitant]
     Active Substance: VANCOMYCIN
     Indication: Bacteraemia
     Dosage: 2 IN 1 D
     Route: 042
     Dates: start: 20220406
  28. HUMAN RED BLOOD CELL [Concomitant]
     Active Substance: HUMAN RED BLOOD CELL
     Indication: Product used for unknown indication
     Dosage: PACKED RED BLOOD CELLS, 2 U
     Route: 065
     Dates: start: 20220409
  29. HUMAN RED BLOOD CELL [Concomitant]
     Active Substance: HUMAN RED BLOOD CELL
     Dosage: PACKED RED BLOOD CELLS, 2U
     Route: 065
     Dates: start: 20220428
  30. HUMAN RED BLOOD CELL [Concomitant]
     Active Substance: HUMAN RED BLOOD CELL
     Route: 065
     Dates: start: 20220709
  31. DEMEZON [Concomitant]
     Indication: Febrile neutropenia
     Route: 042
     Dates: start: 20220711, end: 20220718
  32. POTASSIUM CHLORIDE [Concomitant]
     Active Substance: POTASSIUM CHLORIDE
     Indication: Hypokalaemia
     Route: 042
     Dates: start: 20220714, end: 20220715
  33. PROPRANOLOL [Concomitant]
     Active Substance: PROPRANOLOL HYDROCHLORIDE
     Indication: Tachycardia
     Dosage: 3 IN 1 D
     Route: 048
     Dates: start: 20220708, end: 20220719
  34. CALCIUM CHLORIDE\MAGNESIUM CHLORIDE\POTASSIUM CHLORIDE\SODIUM ACETATE\ [Concomitant]
     Active Substance: CALCIUM CHLORIDE\MAGNESIUM CHLORIDE\POTASSIUM CHLORIDE\SODIUM ACETATE\SODIUM CHLORIDE\SODIUM CITRATE
     Indication: Tachycardia
     Route: 042
     Dates: start: 20220708, end: 20220718

REACTIONS (1)
  - Death [Fatal]
